FAERS Safety Report 4482521-9 (Version None)
Quarter: 2004Q4

REPORT INFORMATION
  Report Type: 
  Country: None (occurrence: None)
  Receive Date: 20041022
  Receipt Date: 20040714
  Transmission Date: 20050328
  Serious: No
  Sender: FDA-Public Use
  Company Number: US-GLAXOSMITHKLINE-A0518535A

PATIENT
  Age: 58 Year
  Sex: Female
  Weight: 66.8 kg

DRUGS (3)
  1. LEXIVA [Suspect]
     Indication: HIV INFECTION
     Dosage: 1400MG PER DAY
     Route: 048
     Dates: start: 20040329, end: 20040412
  2. RITONAVIR [Concomitant]
  3. OTHER ANTIRETROVIRALS [Concomitant]

REACTIONS (1)
  - RASH [None]
